FAERS Safety Report 8837018 (Version 2)
Quarter: 2012Q4

REPORT INFORMATION
  Report Type: 
  Country: US (occurrence: US)
  Receive Date: 20121011
  Receipt Date: 20121017
  Transmission Date: 20130627
  Serious: No
  Sender: FDA-Public Use
  Company Number: US-009507513-1210USA004795

PATIENT
  Age: 24 Year
  Sex: Female
  Weight: 52.15 kg

DRUGS (1)
  1. NUVARING [Suspect]
     Indication: CONTRACEPTION
     Dosage: .015mg/.012mg
     Route: 067
     Dates: start: 20100901

REACTIONS (3)
  - Medical device discomfort [Unknown]
  - Product quality issue [Unknown]
  - Device expulsion [Unknown]
